FAERS Safety Report 4367750-7 (Version None)
Quarter: 2004Q2

REPORT INFORMATION
  Report Type: 
  Country: None (occurrence: None)
  Receive Date: 20040601
  Receipt Date: 20040205
  Transmission Date: 20050107
  Serious: Yes (Hospitalization)
  Sender: FDA-Public Use
  Company Number: PHEH2004US01922

PATIENT
  Age: 78 Year
  Sex: Male
  Weight: 87 kg

DRUGS (4)
  1. ZOMETA [Suspect]
     Indication: METASTASES TO BONE
     Dosage: 4 MG, QMO
     Route: 042
     Dates: start: 20031212, end: 20040115
  2. CASODEX [Concomitant]
     Dosage: 50 MG, QD
     Route: 048
  3. ZOLADEX [Concomitant]
  4. TAMSULOSIN HYDROCHLORIDE [Concomitant]
     Dosage: .4 MG, QD
     Route: 048

REACTIONS (4)
  - CARDIAC ARREST [None]
  - PALLOR [None]
  - PULSE ABSENT [None]
  - SYNCOPE [None]
